FAERS Safety Report 8192090-8 (Version None)
Quarter: 2012Q1

REPORT INFORMATION
  Report Type: 
  Country: None (occurrence: None)
  Receive Date: 20120307
  Receipt Date: 20120302
  Transmission Date: 20120608
  Serious: Yes (Congenital Anomaly)
  Sender: FDA-Public Use
  Company Number: DE-PFIZER INC-2012056069

PATIENT

DRUGS (2)
  1. CARBAMAZEPINE [Concomitant]
     Indication: EPILEPSY
     Dosage: UNK
     Route: 050
     Dates: start: 20091231, end: 20100219
  2. VENLAFAXINE HCL [Suspect]
     Indication: DEPRESSION
     Dosage: 75 MG, 2X/DAY
     Route: 064
     Dates: start: 20091231, end: 20100219

REACTIONS (2)
  - MATERNAL EXPOSURE DURING PREGNANCY [None]
  - SPINA BIFIDA [None]
